FAERS Safety Report 6544511-1 (Version None)
Quarter: 2010Q1

REPORT INFORMATION
  Report Type: 
  Country: None (occurrence: None)
  Receive Date: 20100120
  Receipt Date: 20100120
  Transmission Date: 20100710
  Serious: Yes (Life-Threatening)
  Sender: FDA-Public Use
  Company Number: None

PATIENT
  Age: 77 Year
  Sex: Male
  Weight: 97.5234 kg

DRUGS (1)
  1. PLAVIX [Suspect]
     Indication: CORONARY ARTERIAL STENT INSERTION
     Dosage: 75 MG DAILY PO
     Route: 048
     Dates: start: 20090601, end: 20091201

REACTIONS (1)
  - ACUTE LEUKAEMIA [None]
